FAERS Safety Report 21336273 (Version 1)
Quarter: 2022Q3

REPORT INFORMATION
  Report Type: Spontaneous
  Country: US (occurrence: None)
  Receive Date: 20220914
  Receipt Date: 20220914
  Transmission Date: 20221027
  Serious: No
  Sender: FDA-Public Use
  Company Number: None

PATIENT
  Sex: Female

DRUGS (1)
  1. MYCOPHENOLIC ACID [Suspect]
     Active Substance: MYCOPHENOLIC ACID
     Indication: Scleroderma
     Dosage: 1000MG / 1500 MG  AM/PM  ORAL-1000MG AM/1500MG PM?
     Route: 048
     Dates: start: 20161119

REACTIONS (1)
  - COVID-19 [None]
